FAERS Safety Report 9184319 (Version 1)
Quarter: 2012Q4

REPORT INFORMATION
  Report Type: 
  Country: BE (occurrence: BE)
  Receive Date: 20121031
  Receipt Date: 20121031
  Transmission Date: 20130627
  Serious: Yes (Hospitalization, Other)
  Sender: FDA-Public Use
  Company Number: BE-ELI_LILLY_AND_COMPANY-BE201210008087

PATIENT
  Age: 63 Year
  Sex: Male

DRUGS (1)
  1. EFIENT [Suspect]
     Dosage: UNK

REACTIONS (1)
  - Transient ischaemic attack [Recovered/Resolved]
